FAERS Safety Report 10151412 (Version 2)
Quarter: 2016Q2

REPORT INFORMATION
  Report Type: Spontaneous
  Country: SE (occurrence: SE)
  Receive Date: 20140502
  Receipt Date: 20160504
  Transmission Date: 20160815
  Serious: Yes (Hospitalization)
  Sender: FDA-Public Use
  Company Number: SE-SA-2014SA056590

PATIENT
  Age: 68 Year
  Sex: Female

DRUGS (4)
  1. PROMETHAZINE [Suspect]
     Active Substance: PROMETHAZINE\PROMETHAZINE HYDROCHLORIDE
     Route: 065
     Dates: start: 20140321, end: 20140321
  2. STILNOCT [Suspect]
     Active Substance: ZOLPIDEM TARTRATE
     Route: 048
     Dates: start: 20140321, end: 20140321
  3. SOBRIL [Suspect]
     Active Substance: OXAZEPAM
     Route: 065
     Dates: start: 20140321, end: 20140321
  4. STESOLID [Suspect]
     Active Substance: DIAZEPAM
     Route: 065
     Dates: start: 20140321, end: 20140321

REACTIONS (5)
  - Unresponsive to stimuli [Unknown]
  - Depressed level of consciousness [Unknown]
  - Suicide attempt [Unknown]
  - Toxicity to various agents [Unknown]
  - Lethargy [Unknown]

NARRATIVE: CASE EVENT DATE: 20140321
